FAERS Safety Report 8238075-4 (Version None)
Quarter: 2012Q1

REPORT INFORMATION
  Report Type: 
  Country: None (occurrence: None)
  Receive Date: 20120327
  Receipt Date: 20120320
  Transmission Date: 20120608
  Serious: Yes (Hospitalization)
  Sender: FDA-Public Use
  Company Number: US-GLAXOSMITHKLINE-A0971201A

PATIENT
  Age: 45 Year
  Sex: Female
  Weight: 60 kg

DRUGS (3)
  1. FLOLAN [Suspect]
     Indication: PULMONARY ARTERIAL HYPERTENSION
     Dosage: 62NGKM UNKNOWN
     Route: 042
     Dates: start: 20020328
  2. COUMADIN [Concomitant]
     Dosage: 15MG PER DAY
     Route: 048
  3. REVATIO [Concomitant]
     Dosage: 40MGD PER DAY

REACTIONS (4)
  - ABDOMINAL PAIN LOWER [None]
  - NAUSEA [None]
  - VOMITING [None]
  - PANCREATITIS [None]
